FAERS Safety Report 10220307 (Version 3)
Quarter: 2014Q3

REPORT INFORMATION
  Report Type: Report from Study
  Country: JP (occurrence: JP)
  Receive Date: 20140606
  Receipt Date: 20140714
  Transmission Date: 20150326
  Serious: Yes (Hospitalization)
  Sender: FDA-Public Use
  Company Number: JP-ROCHE-1413180

PATIENT
  Age: 77 Year
  Sex: Female
  Weight: 44.8 kg

DRUGS (14)
  1. NIZOFENONE FUMARATE [Concomitant]
     Indication: DEMENTIA WITH LEWY BODIES
  2. RITUXIMAB [Suspect]
     Active Substance: RITUXIMAB
     Indication: DIFFUSE LARGE B-CELL LYMPHOMA
     Dosage: DATE OF MOST RECENT VOLUME (547.5 ML) AND DOSE CONCENTRATION (1 MG/ML) PRIOR TO SAE ONSET: 28/MAY/20
     Route: 042
     Dates: start: 20140303
  3. CYCLOPHOSPHAMIDE. [Suspect]
     Active Substance: CYCLOPHOSPHAMIDE
     Indication: DIFFUSE LARGE B-CELL LYMPHOMA
     Dosage: DATE OF MOST RECENT DOSE (1050 MG) : 29/MAY/2014
     Route: 042
     Dates: start: 20140304
  4. DOXORUBICIN [Suspect]
     Active Substance: DOXORUBICIN
     Indication: DIFFUSE LARGE B-CELL LYMPHOMA
     Dosage: DATE OF MOST RECENT DOSE (70 MG) : 29/MAY/2014
     Route: 042
     Dates: start: 20140304
  5. SODIUM GUALENATE HYDRATE [Concomitant]
     Route: 065
     Dates: start: 20140301
  6. VINCRISTINE [Suspect]
     Active Substance: VINCRISTINE
     Indication: DIFFUSE LARGE B-CELL LYMPHOMA
     Dosage: DATE OF MOST RECENT DOSE (1.9 MG) : 29/MAY/2014
     Route: 042
     Dates: start: 20140304
  7. PREDNISOLONE. [Suspect]
     Active Substance: PREDNISOLONE
     Indication: DIFFUSE LARGE B-CELL LYMPHOMA
     Dosage: DATE OF MOST RECENT DOSE (100 MG) : 01/JUN/2014
     Route: 048
     Dates: start: 20140303
  8. FLUCONAZOLE. [Concomitant]
     Active Substance: FLUCONAZOLE
     Route: 065
     Dates: start: 20140301
  9. LOXOPROFEN SODIUM [Concomitant]
     Active Substance: LOXOPROFEN SODIUM
     Indication: OSTEOPOROSIS
  10. RABEPRAZOLE [Concomitant]
     Active Substance: RABEPRAZOLE
  11. CELECOXIB. [Concomitant]
     Active Substance: CELECOXIB
     Indication: OSTEOPOROSIS
     Route: 065
     Dates: start: 20140228
  12. ACETAMINOPHEN. [Concomitant]
     Active Substance: ACETAMINOPHEN
     Indication: OSTEOPOROSIS
     Route: 065
     Dates: start: 20140301
  13. PANTETHINE [Concomitant]
     Active Substance: PANTETHINE
     Indication: CONSTIPATION
     Route: 065
     Dates: start: 20140305
  14. MAGNESIUM OXIDE. [Concomitant]
     Active Substance: MAGNESIUM OXIDE
     Indication: CONSTIPATION
     Route: 065
     Dates: start: 20140305

REACTIONS (1)
  - Melaena [Recovered/Resolved]

NARRATIVE: CASE EVENT DATE: 20140602
